FAERS Safety Report 20428161 (Version 1)
Quarter: 2022Q1

REPORT INFORMATION
  Report Type: Spontaneous
  Country: US (occurrence: US)
  Receive Date: 20220204
  Receipt Date: 20220204
  Transmission Date: 20220424
  Serious: Yes (Hospitalization, Other)
  Sender: FDA-Public Use
  Company Number: US-VELOXIS PHARMACEUTICALS-2022VELUS-000040

PATIENT
  Age: 24 Year
  Sex: Male

DRUGS (7)
  1. TACROLIMUS [Suspect]
     Active Substance: TACROLIMUS
     Indication: Immunosuppressant drug therapy
     Dosage: UNK
     Dates: start: 202001, end: 202002
  2. TACROLIMUS [Suspect]
     Active Substance: TACROLIMUS
     Dosage: DOSE INCREASED
     Dates: start: 2020, end: 2020
  3. TACROLIMUS [Suspect]
     Active Substance: TACROLIMUS
     Dosage: DOSE REDUCTION
     Dates: start: 202002, end: 2020
  4. MYCOPHENOLIC ACID [Suspect]
     Active Substance: MYCOPHENOLIC ACID
     Indication: Immunosuppressant drug therapy
     Dosage: DOSE INCREASED
     Dates: start: 2020, end: 2020
  5. MYCOPHENOLIC ACID [Suspect]
     Active Substance: MYCOPHENOLIC ACID
     Dosage: UNK
     Dates: start: 202001, end: 202002
  6. MYCOPHENOLIC ACID [Suspect]
     Active Substance: MYCOPHENOLIC ACID
     Dosage: DOSE REDUCTION
     Dates: start: 202002, end: 2020
  7. IMMUNOGLOBULINS [Concomitant]
     Indication: Transplant rejection
     Dosage: UNK
     Route: 042
     Dates: start: 2020

REACTIONS (5)
  - Hyponatraemia [Recovered/Resolved]
  - Hepatic enzyme increased [Recovered/Resolved]
  - Colitis [Recovered/Resolved]
  - Cryptosporidiosis infection [Recovered/Resolved]
  - Leukopenia [Recovered/Resolved]

NARRATIVE: CASE EVENT DATE: 20201001
